FAERS Safety Report 18747830 (Version 3)
Quarter: 2021Q1

REPORT INFORMATION
  Report Type: Spontaneous
  Country: US (occurrence: US)
  Receive Date: 20210115
  Receipt Date: 20210315
  Transmission Date: 20210419
  Serious: Yes (Hospitalization, Other)
  Sender: FDA-Public Use
  Company Number: US-PFIZER INC-2020290256

PATIENT
  Age: 85 Year
  Sex: Female
  Weight: 63.49 kg

DRUGS (6)
  1. LETROZOLE. [Concomitant]
     Active Substance: LETROZOLE
     Dosage: 2.5 MG, DAILY
     Dates: start: 20200505
  2. LETROZOLE. [Concomitant]
     Active Substance: LETROZOLE
     Indication: BREAST CANCER FEMALE
     Dosage: 2.5 MG, DAILY
     Dates: start: 20200504
  3. IBRANCE [Suspect]
     Active Substance: PALBOCICLIB
     Indication: BREAST CANCER FEMALE
     Dosage: 125 MG, CYCLIC (ONE CAPSULE DAILY/ DAYS 1 THROUGH 21 OF 28 DAY SCHEDULE)
     Route: 048
     Dates: start: 20200720
  4. IBRANCE [Suspect]
     Active Substance: PALBOCICLIB
     Indication: BREAST CANCER METASTATIC
     Dosage: 100 MG, CYCLIC  (DAYS 1 THROUGH 21 OF 28 DAY SCHEDULE)
  5. IBRANCE [Suspect]
     Active Substance: PALBOCICLIB
     Dosage: UNK
     Route: 048
     Dates: start: 20200805, end: 20200820
  6. IBRANCE [Suspect]
     Active Substance: PALBOCICLIB
     Dosage: UNK (LOWER DOSE)
     Route: 048
     Dates: start: 20200908, end: 20210203

REACTIONS (4)
  - Neutropenia [Recovering/Resolving]
  - Neoplasm progression [Unknown]
  - Radiation pneumonitis [Unknown]
  - Nausea [Recovered/Resolved]

NARRATIVE: CASE EVENT DATE: 20200702
